FAERS Safety Report 6484105-X (Version None)
Quarter: 2009Q4

REPORT INFORMATION
  Report Type: 
  Country: None (occurrence: None)
  Receive Date: 20091208
  Receipt Date: 20091208
  Transmission Date: 20100525
  Serious: Yes (Hospitalization)
  Sender: FDA-Public Use
  Company Number: None

PATIENT
  Age: 78 Year
  Weight: 124.7392 kg

DRUGS (2)
  1. ALLOPURINOL TAB [Suspect]
     Indication: GOUT
     Dosage: 1 TABLET BY MOUTH EVERYDAY
     Route: 048
     Dates: start: 20091004, end: 20091030
  2. ALLOPURINOL TAB [Suspect]
     Indication: PROPHYLAXIS
     Dosage: 1 TABLET BY MOUTH EVERYDAY
     Route: 048
     Dates: start: 20091004, end: 20091030

REACTIONS (1)
  - EPIDERMAL NECROSIS [None]
